FAERS Safety Report 24754632 (Version 1)
Quarter: 2024Q4

REPORT INFORMATION
  Report Type: Report from Study
  Country: US (occurrence: US)
  Receive Date: 20241219
  Receipt Date: 20241219
  Transmission Date: 20250114
  Serious: Yes (Other)
  Sender: AMGEN
  Company Number: US-AMGEN-USASL2024247080

PATIENT
  Age: 55 Year
  Sex: Female
  Weight: 81.088 kg

DRUGS (4)
  1. PROLIA [Suspect]
     Active Substance: DENOSUMAB
     Indication: Osteoporosis
     Dosage: UNK
     Route: 065
  2. PROLIA [Suspect]
     Active Substance: DENOSUMAB
  3. EVENITY [Suspect]
     Active Substance: ROMOSOZUMAB-AQQG
     Indication: Product used for unknown indication
     Dosage: UNK
     Route: 065
  4. FOSAMAX [Concomitant]
     Active Substance: ALENDRONATE SODIUM
     Dosage: UNK

REACTIONS (16)
  - Angioedema [Unknown]
  - Myelopathy [Unknown]
  - Pelvic fracture [Unknown]
  - Squamous cell carcinoma [Unknown]
  - Wrist fracture [Unknown]
  - Myalgia [Unknown]
  - Trismus [Unknown]
  - Spinal disorder [Unknown]
  - Adjacent segment degeneration [Unknown]
  - Intervertebral disc protrusion [Unknown]
  - Spinal claudication [Unknown]
  - Flatback syndrome [Unknown]
  - Essential hypertension [Unknown]
  - Spinal stenosis [Unknown]
  - Overweight [Unknown]
  - Scoliosis [Unknown]

NARRATIVE: CASE EVENT DATE: 20170101
